FAERS Safety Report 14196645 (Version 5)
Quarter: 2019Q1

REPORT INFORMATION
  Report Type: Report from Study
  Country: DE (occurrence: DE)
  Receive Date: 20171116
  Receipt Date: 20190102
  Transmission Date: 20190417
  Serious: Yes (Hospitalization, Other)
  Sender: FDA-Public Use
  Company Number: DE-INCYTE CORPORATION-2017IN008926

PATIENT

DRUGS (13)
  1. JAKAVI [Suspect]
     Active Substance: RUXOLITINIB
     Dosage: 15 MG, BID
     Route: 048
     Dates: start: 20170222, end: 20170917
  2. EUTHYROX [Concomitant]
     Active Substance: LEVOTHYROXINE SODIUM
     Indication: HYPOTHYROIDISM
     Dosage: 50 OT, UNK
     Route: 048
     Dates: start: 20101029
  3. MIRTAZAPIN [Concomitant]
     Active Substance: MIRTAZAPINE
     Indication: DEPRESSION
     Dosage: 15 OT, UNK
     Route: 048
     Dates: start: 20141204
  4. ASPIRIN. [Concomitant]
     Active Substance: ASPIRIN
     Indication: PRODUCT USED FOR UNKNOWN INDICATION
     Dosage: UNK
     Route: 065
  5. JAKAVI [Suspect]
     Active Substance: RUXOLITINIB
     Dosage: 15 MG, BID
     Route: 048
     Dates: start: 20170920
  6. ASPIRIN. [Concomitant]
     Active Substance: ASPIRIN
     Indication: THROMBOSIS PROPHYLAXIS
     Dosage: 1000 MG, UNK
     Route: 048
     Dates: start: 20100129, end: 20170918
  7. FERRO-SANOL DUODENAL [Concomitant]
     Active Substance: FERROUS GLYCINE SULFATE
     Indication: ANAEMIA
     Dosage: UNK
     Route: 048
     Dates: start: 201801, end: 20180209
  8. JAKAVI [Suspect]
     Active Substance: RUXOLITINIB
     Dosage: 15 MG, BID
     Route: 048
     Dates: start: 20170918, end: 20170920
  9. DOXYCYCLIN [Concomitant]
     Active Substance: DOXYCYCLINE
     Dosage: 200 OT, UNK
     Route: 048
     Dates: start: 20170720
  10. ASPIRIN. [Concomitant]
     Active Substance: ASPIRIN
     Dosage: 100 OT, UNK
     Route: 048
  11. JAKAVI [Suspect]
     Active Substance: RUXOLITINIB
     Indication: POLYCYTHAEMIA VERA
     Dosage: 10 MG, BID
     Route: 048
     Dates: start: 20170128, end: 20170221
  12. JAKAVI [Suspect]
     Active Substance: RUXOLITINIB
     Dosage: 10 MG, BID
     Route: 048
     Dates: start: 20170209, end: 20170221
  13. DOXYCYCLIN [Concomitant]
     Active Substance: DOXYCYCLINE
     Indication: BORRELIA TEST POSITIVE
     Dosage: 200 OT, UNK
     Route: 048
     Dates: start: 20170129, end: 20170808

REACTIONS (19)
  - Blood chloride decreased [Unknown]
  - Haemoglobin decreased [Recovering/Resolving]
  - Upper gastrointestinal haemorrhage [Recovered/Resolved]
  - Red blood cell count decreased [Unknown]
  - Glomerular filtration rate decreased [Unknown]
  - Blood glucose increased [Unknown]
  - Helicobacter infection [Unknown]
  - Melaena [Recovered/Resolved]
  - Platelet count increased [Unknown]
  - Gastric ulcer [Recovered/Resolved]
  - Mean cell haemoglobin decreased [Unknown]
  - Mallory-Weiss syndrome [Recovered/Resolved]
  - PCO2 decreased [Unknown]
  - Anaemia [Recovering/Resolving]
  - Haematemesis [Recovered/Resolved]
  - PO2 increased [Unknown]
  - Haematocrit decreased [Unknown]
  - White blood cell count increased [Unknown]
  - Activated partial thromboplastin time shortened [Unknown]

NARRATIVE: CASE EVENT DATE: 201709
